FAERS Safety Report 9919664 (Version 5)
Quarter: 2015Q1

REPORT INFORMATION
  Report Type: Report from Study
  Country: US (occurrence: US)
  Receive Date: 20140224
  Receipt Date: 20150202
  Transmission Date: 20150721
  Serious: Yes (Other)
  Sender: FDA-Public Use
  Company Number: US-SA-2014SA002559

PATIENT
  Age: 65 Year
  Sex: Female

DRUGS (2)
  1. AUBAGIO [Suspect]
     Active Substance: TERIFLUNOMIDE
     Indication: MULTIPLE SCLEROSIS
     Route: 048
     Dates: start: 20131114, end: 20140615
  2. AUBAGIO [Suspect]
     Active Substance: TERIFLUNOMIDE
     Indication: MULTIPLE SCLEROSIS
     Route: 048
     Dates: end: 201410

REACTIONS (10)
  - Cataract [Unknown]
  - Fall [Unknown]
  - Neuropathy peripheral [Unknown]
  - Dementia [Unknown]
  - Impaired driving ability [Unknown]
  - Drug dose omission [Unknown]
  - Visual acuity reduced [Unknown]
  - Pain [Unknown]
  - Weight decreased [Unknown]
  - Limb discomfort [Unknown]

NARRATIVE: CASE EVENT DATE: 201406
